FAERS Safety Report 9962833 (Version 2)
Quarter: 2014Q1

REPORT INFORMATION
  Report Type: Report from Study
  Country: US (occurrence: US)
  Receive Date: 20140305
  Receipt Date: 20140305
  Transmission Date: 20141002
  Serious: Yes (Hospitalization, Other)
  Sender: FDA-Public Use
  Company Number: US-ABBVIE-13P-163-1070792-00

PATIENT
  Age: 62 Year
  Sex: Female
  Weight: 97.16 kg

DRUGS (3)
  1. HUMIRA [Suspect]
     Indication: RHEUMATOID ARTHRITIS
     Route: 058
  2. HUMIRA [Suspect]
  3. LEFLUNOMIDE [Concomitant]

REACTIONS (2)
  - Hip arthroplasty [Recovering/Resolving]
  - Postoperative wound infection [Recovering/Resolving]
